FAERS Safety Report 7312810-1 (Version None)
Quarter: 2011Q1

REPORT INFORMATION
  Report Type: 
  Country: None (occurrence: None)
  Receive Date: 20110224
  Receipt Date: 20100104
  Transmission Date: 20110831
  Serious: No
  Sender: FDA-Public Use
  Company Number: US-MYLANLABS-2010S1000222

PATIENT
  Age: 62 Year
  Sex: Female

DRUGS (8)
  1. METOPROLOL TARTRATE [Suspect]
     Indication: HYPERTENSION
     Route: 048
     Dates: start: 20091001, end: 20100101
  2. CYCLOBENZAPRINE [Concomitant]
  3. LISINOPRIL [Concomitant]
  4. METFORMIN [Concomitant]
     Dosage: TWO TABS
  5. VICODIN [Concomitant]
  6. LIPITOR [Concomitant]
  7. OMEPRAZOLE [Concomitant]
  8. SULAR [Concomitant]

REACTIONS (2)
  - PALPITATIONS [None]
  - HEART RATE INCREASED [None]
